FAERS Safety Report 16033608 (Version 2)
Quarter: 2019Q2

REPORT INFORMATION
  Report Type: Spontaneous
  Country: US (occurrence: US)
  Receive Date: 20190305
  Receipt Date: 20190606
  Transmission Date: 20190711
  Serious: Yes (Other)
  Sender: FDA-Public Use
  Company Number: US-IMPAX LABORATORIES, LLC-2018-IPXL-02445

PATIENT
  Sex: Male
  Weight: 95 kg

DRUGS (7)
  1. MIDODRINE [Concomitant]
     Active Substance: MIDODRINE
     Indication: PRODUCT USED FOR UNKNOWN INDICATION
     Dosage: 5 MG, TWO TABLETS, THREE TIMES A DAY
     Route: 065
  2. RANITIDINE. [Concomitant]
     Active Substance: RANITIDINE
     Indication: PRODUCT USED FOR UNKNOWN INDICATION
     Dosage: 150 MILLIGRAM, BEDTIME
     Route: 065
  3. RYTARY [Suspect]
     Active Substance: CARBIDOPA\LEVODOPA
     Dosage: 36.25/145MG, THREE CAPSULES, THREE TIMES A DAY(EVERY 8 HOURS)
     Route: 048
  4. RYTARY [Suspect]
     Active Substance: CARBIDOPA\LEVODOPA
     Dosage: 36.25/145MG, THREE CAPSULES, FOUR TIMES A DAY(EVERY 6 HOURS)
     Route: 048
     Dates: start: 20180720
  5. RYTARY [Suspect]
     Active Substance: CARBIDOPA\LEVODOPA
     Dosage: 36.25/145MG, THREE CAPSULES, FOUR TIMES A DAY(EVERY 6 HOURS)
     Route: 048
  6. RYTARY [Suspect]
     Active Substance: CARBIDOPA\LEVODOPA
     Indication: PARKINSON^S DISEASE
     Dosage: 36.25/145MG, TWO CAPSULES, THREE TIMES A DAY (TID)
     Route: 048
  7. RYTARY [Suspect]
     Active Substance: CARBIDOPA\LEVODOPA
     Dosage: 36.25/145MG, TWO CAPSULES, FOUR TIMES A DAY
     Route: 048
     Dates: start: 2018

REACTIONS (4)
  - Somnolence [Unknown]
  - Gait inability [Unknown]
  - Bronchitis [Unknown]
  - Intentional product use issue [Unknown]
